FAERS Safety Report 25980042 (Version 1)
Quarter: 2025Q4

REPORT INFORMATION
  Report Type: Spontaneous
  Country: US (occurrence: None)
  Receive Date: 20251029
  Receipt Date: 20251029
  Transmission Date: 20260117
  Serious: Yes (unspecified)
  Sender: FDA-CTU
  Company Number: None

PATIENT
  Age: 56 Year
  Sex: Female
  Weight: 76.05 kg

DRUGS (13)
  1. PEMGARDA [Suspect]
     Active Substance: PEMIVIBART
     Indication: COVID-19 prophylaxis
     Dates: start: 20251028, end: 20251028
  2. PREDNISONE [Concomitant]
     Active Substance: PREDNISONE
  3. MYCOPHENOLIC ACID [Concomitant]
     Active Substance: MYCOPHENOLIC ACID
  4. CYCLOSPORINE [Concomitant]
     Active Substance: CYCLOSPORINE
  5. URSODIOL [Concomitant]
     Active Substance: URSODIOL
  6. METHENAMINE [Concomitant]
     Active Substance: METHENAMINE
  7. estrogen cream [Concomitant]
  8. VITAMIN C [Concomitant]
     Active Substance: ASCORBIC ACID
  9. VITAMIN D [Concomitant]
     Active Substance: VITAMIN D NOS
  10. AREDS-2 [Concomitant]
  11. CRANBERRY [Concomitant]
     Active Substance: CRANBERRY
  12. CALCIUM [Concomitant]
     Active Substance: CALCIUM
  13. daily women [Concomitant]

REACTIONS (3)
  - Chest pain [None]
  - Chest discomfort [None]
  - Infusion related reaction [None]

NARRATIVE: CASE EVENT DATE: 20251028
